FAERS Safety Report 13913850 (Version 5)
Quarter: 2018Q1

REPORT INFORMATION
  Report Type: Spontaneous
  Country: US (occurrence: US)
  Receive Date: 20170829
  Receipt Date: 20180130
  Transmission Date: 20180508
  Serious: Yes (Hospitalization)
  Sender: FDA-Public Use
  Company Number: US-PFIZER INC-2017330318

PATIENT
  Age: 46 Year
  Sex: Female

DRUGS (7)
  1. LYRICA [Suspect]
     Active Substance: PREGABALIN
     Indication: SCIATICA
     Dosage: 100 MG, 2 OR 3 TIMES DAILY AS NEEDED
  2. CLONAZEPAM. [Suspect]
     Active Substance: CLONAZEPAM
     Dosage: 0.5 MG, 2X/DAY
  3. TEMAZEPAM. [Concomitant]
     Active Substance: TEMAZEPAM
     Dosage: 30 MG, 1X/DAY (AT NIGHT)
  4. KLONOPIN [Suspect]
     Active Substance: CLONAZEPAM
     Dosage: 2 MG, 3X/DAY
     Route: 048
  5. CLONAZEPAM. [Suspect]
     Active Substance: CLONAZEPAM
     Dosage: 2 MG, 3X/DAY
  6. GABAPENTIN. [Concomitant]
     Active Substance: GABAPENTIN
     Indication: SCIATICA
     Dosage: 400 MG, 2X/DAY
  7. LYRICA [Suspect]
     Active Substance: PREGABALIN
     Dosage: 224 MG, 2 OR 3 TIMES DAILY AS NEEDED

REACTIONS (6)
  - Therapeutic response unexpected [Unknown]
  - Pain [Unknown]
  - Bedridden [Unknown]
  - Product use issue [Unknown]
  - Prescribed overdose [Unknown]
  - Withdrawal syndrome [Unknown]
